FAERS Safety Report 9868013 (Version 2)
Quarter: 2014Q1

REPORT INFORMATION
  Report Type: Spontaneous
  Country: US (occurrence: US)
  Receive Date: 20140204
  Receipt Date: 20140204
  Transmission Date: 20141002
  Serious: Yes (Hospitalization)
  Sender: FDA-Public Use
  Company Number: US-B.I. PHARMACEUTICALS,INC./RIDGEFIELD-2012-BP-11010BP

PATIENT
  Sex: Female
  Weight: 63.5 kg

DRUGS (10)
  1. PRADAXA [Suspect]
     Indication: ATRIAL FIBRILLATION
     Dates: start: 20110602, end: 20120201
  2. PRADAXA [Suspect]
     Indication: ANTICOAGULANT THERAPY
  3. ASPIRIN [Concomitant]
  4. LEVOTHYROXINE [Concomitant]
     Dates: start: 200604
  5. ALENDRONATE SODIUM [Concomitant]
     Dates: start: 200812
  6. ROPINIROLE HCL [Concomitant]
     Dates: start: 200905
  7. CLONAZEPAM [Concomitant]
     Dates: start: 200604
  8. CARDIZEM [Concomitant]
     Dates: start: 201002
  9. LANSOPRAZOLE [Concomitant]
     Dates: start: 201006
  10. LETROZOLE [Concomitant]

REACTIONS (1)
  - Epistaxis [Unknown]
